FAERS Safety Report 8781777 (Version 3)
Quarter: 2013Q1

REPORT INFORMATION
  Report Type: Spontaneous
  Country: US (occurrence: US)
  Receive Date: 20120913
  Receipt Date: 20130111
  Transmission Date: 20140127
  Serious: No
  Sender: FDA-Public Use
  Company Number: US-009507513-1209USA000612

PATIENT
  Age: 22 Year
  Sex: Female
  Weight: 65.76 kg

DRUGS (1)
  1. IMPLANON [Suspect]
     Indication: CONTRACEPTION
     Dosage: 1 DF, 3 YEARS
     Route: 059
     Dates: start: 20120127

REACTIONS (3)
  - Device breakage [Unknown]
  - No adverse event [Unknown]
  - Product quality issue [Unknown]
